FAERS Safety Report 14079315 (Version 3)
Quarter: 2017Q4

REPORT INFORMATION
  Report Type: Spontaneous
  Country: IE (occurrence: IE)
  Receive Date: 20171012
  Receipt Date: 20171115
  Transmission Date: 20180321
  Serious: Yes (Other)
  Sender: FDA-Public Use
  Company Number: IE-GLAXOSMITHKLINE-IE2017GSK147990

PATIENT
  Age: 70 Year
  Sex: Male
  Weight: 125 kg

DRUGS (4)
  1. CLEXANE [Concomitant]
     Active Substance: ENOXAPARIN SODIUM
     Dosage: 100 MG, BID
     Dates: start: 2014
  2. FLOLAN [Suspect]
     Active Substance: EPOPROSTENOL SODIUM
     Indication: COAGULOPATHY
     Dosage: UNK
     Dates: start: 20170919, end: 20170919
  3. ASPIRIN. [Concomitant]
     Active Substance: ASPIRIN
  4. FLOLAN [Suspect]
     Active Substance: EPOPROSTENOL SODIUM
     Indication: COAGULOPATHY

REACTIONS (4)
  - Device leakage [Recovered/Resolved]
  - Drug administration error [Unknown]
  - Infusion site haemorrhage [Unknown]
  - Device breakage [Unknown]

NARRATIVE: CASE EVENT DATE: 20170919
